FAERS Safety Report 16937440 (Version 1)
Quarter: 2019Q4

REPORT INFORMATION
  Report Type: Report from Study
  Country: US (occurrence: US)
  Receive Date: 20191019
  Receipt Date: 20191019
  Transmission Date: 20200122
  Serious: Yes (Death)
  Sender: FDA-Public Use
  Company Number: US-ROCHE-2438965

PATIENT
  Sex: Male

DRUGS (6)
  1. ESBRIET [Suspect]
     Active Substance: PIRFENIDONE
     Indication: CHRONIC RESPIRATORY FAILURE
  2. ESBRIET [Suspect]
     Active Substance: PIRFENIDONE
     Indication: HYPERSENSITIVITY PNEUMONITIS
  3. ESBRIET [Suspect]
     Active Substance: PIRFENIDONE
     Indication: ATELECTASIS
  4. ESBRIET [Suspect]
     Active Substance: PIRFENIDONE
     Indication: IDIOPATHIC PULMONARY FIBROSIS
     Dosage: TAKE 1 TABLET BY MOUTH 3 TIMES A DAY WITH MEALS
     Route: 048
  5. ESBRIET [Suspect]
     Active Substance: PIRFENIDONE
     Indication: BRONCHIECTASIS
  6. ESBRIET [Suspect]
     Active Substance: PIRFENIDONE
     Indication: HYPOXIA

REACTIONS (1)
  - Death [Fatal]
